FAERS Safety Report 6191475-9 (Version None)
Quarter: 2009Q2

REPORT INFORMATION
  Report Type: 
  Country: None (occurrence: None)
  Receive Date: 20090515
  Receipt Date: 20090502
  Transmission Date: 20091009
  Serious: Yes (Other)
  Sender: FDA-Public Use
  Company Number: US-ELI_LILLY_AND_COMPANY-US200810004163

PATIENT
  Sex: Female
  Weight: 87.528 kg

DRUGS (11)
  1. PROZAC [Suspect]
     Indication: MAJOR DEPRESSION
     Dosage: 20 MG, 2/D
     Route: 065
     Dates: start: 19950701, end: 19981201
  2. PROZAC [Suspect]
     Dosage: 20 MG, DAILY (1/D)
     Route: 065
     Dates: start: 19990612, end: 20010630
  3. TRILAFON [Concomitant]
     Indication: MAJOR DEPRESSION
     Dosage: 2 MG, 3/D
     Route: 065
     Dates: start: 19950701
  4. TRILAFON [Concomitant]
     Dosage: 4 MG, EACH EVENING
     Route: 065
     Dates: start: 19950701
  5. TRILAFON [Concomitant]
     Dosage: 2 MG, DAILY (1/D)
     Route: 065
     Dates: end: 19981201
  6. TRILAFON [Concomitant]
     Dosage: 2 MG, DAILY (1/D)
     Route: 065
     Dates: start: 19990612
  7. COGENTIN [Concomitant]
     Indication: MAJOR DEPRESSION
     Dosage: 1 MG, DAILY (1/D)
     Route: 065
     Dates: start: 19950701, end: 19950701
  8. BENADRYL [Concomitant]
     Dosage: 50 MG, EACH EVENING
     Route: 065
     Dates: start: 19950701
  9. ZANTAC [Concomitant]
     Dosage: 150 MG, DAILY (1/D)
     Route: 065
  10. CLARITIN-D [Concomitant]
     Dosage: 10 MG, DAILY (1/D)
     Route: 065
     Dates: end: 19981201
  11. CLARITIN-D [Concomitant]
     Dosage: 10 MG, DAILY (1/D)
     Route: 065
     Dates: start: 19990612

REACTIONS (12)
  - ABNORMAL DREAMS [None]
  - COGNITIVE DISORDER [None]
  - DELUSION [None]
  - DRUG EXPOSURE DURING PREGNANCY [None]
  - HALLUCINATION, AUDITORY [None]
  - HEADACHE [None]
  - MOOD ALTERED [None]
  - MOOD SWINGS [None]
  - PHYSICAL ASSAULT [None]
  - PYREXIA [None]
  - SLEEP DISORDER [None]
  - TEARFULNESS [None]
